FAERS Safety Report 5660934-7 (Version None)
Quarter: 2008Q1

REPORT INFORMATION
  Report Type: 
  Country: None (occurrence: None)
  Receive Date: 20080311
  Receipt Date: 20080229
  Transmission Date: 20080703
  Serious: No
  Sender: FDA-Public Use
  Company Number: US-PFIZER INC-2007108088

PATIENT
  Sex: Male
  Weight: 91 kg

DRUGS (5)
  1. LIPITOR [Suspect]
     Indication: HYPERCHOLESTEROLAEMIA
  2. LIPITOR [Suspect]
     Indication: BLOOD CHOLESTEROL INCREASED
  3. NORVASC [Suspect]
     Indication: ANGINA PECTORIS
  4. ATENOLOL [Concomitant]
  5. ASPIRIN [Concomitant]

REACTIONS (1)
  - NO ADVERSE EVENT [None]
